FAERS Safety Report 9125618 (Version 1)
Quarter: 2013Q1

REPORT INFORMATION
  Report Type: Spontaneous
  Country: BE (occurrence: BE)
  Receive Date: 20130121
  Receipt Date: 20130121
  Transmission Date: 20140127
  Serious: Yes (Death, Other)
  Sender: FDA-Public Use
  Company Number: BE-ELI_LILLY_AND_COMPANY-BE201301005630

PATIENT
  Age: 80 Year
  Sex: Male

DRUGS (3)
  1. ALIMTA [Suspect]
     Indication: LUNG ADENOCARCINOMA
  2. VITAMIN D [Concomitant]
  3. CORTICOSTEROIDS [Concomitant]

REACTIONS (2)
  - Death [Fatal]
  - Febrile neutropenia [Unknown]
